FAERS Safety Report 4588621-7 (Version None)
Quarter: 2005Q1

REPORT INFORMATION
  Report Type: 
  Country: None (occurrence: None)
  Receive Date: 20050214
  Receipt Date: 20050214
  Transmission Date: 20050727
  Serious: Yes (Death, Life-Threatening, Hospitalization)
  Sender: FDA-Public Use
  Company Number: None

PATIENT
  Age: 69 Year
  Sex: Male

DRUGS (3)
  1. ETOPOSIDE [Suspect]
     Indication: SMALL CELL LUNG CANCER STAGE UNSPECIFIED
     Dosage: 258 MG IV,259 MG IV,252 MG IV, 250 MG IV
     Route: 042
     Dates: start: 20040907, end: 20041026
  2. CISPLATIN [Suspect]
     Indication: SMALL CELL LUNG CANCER STAGE UNSPECIFIED
     Dosage: 129 MG IV,129 MG IV,126 MG IV,125 MG IV
     Route: 042
     Dates: start: 20040929, end: 20041125
  3. RADIATION THERAPY [Concomitant]

REACTIONS (8)
  - CLOSTRIDIUM COLITIS [None]
  - DISEASE RECURRENCE [None]
  - EXPLORATORY OPERATION [None]
  - FEBRILE NEUTROPENIA [None]
  - NEUTROPENIC COLITIS [None]
  - RENAL FAILURE ACUTE [None]
  - SEPSIS [None]
  - THROMBOCYTOPENIA [None]
